FAERS Safety Report 4949660-7 (Version None)
Quarter: 2006Q1

REPORT INFORMATION
  Report Type: 
  Country: None (occurrence: None)
  Receive Date: 20060316
  Receipt Date: 20060308
  Transmission Date: 20060701
  Serious: Yes (Other)
  Sender: FDA-Public Use
  Company Number: 2006017664

PATIENT
  Age: 84 Year
  Sex: Female

DRUGS (1)
  1. NEURONTIN [Suspect]
     Indication: NEUROPATHY PERIPHERAL
     Dosage: 300 MG (100 MG, 3 IN 1 D), ORAL
     Route: 048

REACTIONS (4)
  - ANAEMIA [None]
  - GASTROINTESTINAL HAEMORRHAGE [None]
  - OCCULT BLOOD POSITIVE [None]
  - PROTHROMBIN TIME PROLONGED [None]
